FAERS Safety Report 12531998 (Version 1)
Quarter: 2016Q3

REPORT INFORMATION
  Report Type: Spontaneous
  Country: US (occurrence: US)
  Receive Date: 20160706
  Receipt Date: 20160706
  Transmission Date: 20161109
  Serious: Yes (Death, Hospitalization)
  Sender: FDA-Public Use
  Company Number: US-MALLINCKRODT-T201602713

PATIENT
  Age: 16 Year
  Sex: Male

DRUGS (1)
  1. GABLOFEN [Suspect]
     Active Substance: BACLOFEN
     Indication: MUSCLE SPASTICITY
     Dosage: 350 MCG/DAY
     Route: 037

REACTIONS (3)
  - Pain [Unknown]
  - Gastrointestinal disorder [Fatal]
  - Sepsis [Unknown]

NARRATIVE: CASE EVENT DATE: 201604
